FAERS Safety Report 7846819-6 (Version None)
Quarter: 2011Q4

REPORT INFORMATION
  Report Type: 
  Country: None (occurrence: None)
  Receive Date: 20111025
  Receipt Date: 20111021
  Transmission Date: 20120403
  Serious: Yes (Other)
  Sender: FDA-Public Use
  Company Number: PHHY2011US58522

PATIENT
  Sex: Female

DRUGS (5)
  1. BACLOFEN [Concomitant]
     Indication: MUSCLE SPASMS
     Dosage: 20 MG, UNK
     Route: 048
     Dates: start: 20040101
  2. EXTAVIA [Suspect]
     Indication: MULTIPLE SCLEROSIS
     Dosage: 0.25 MG, QOD
     Route: 058
     Dates: start: 20110501
  3. TOPAMAX [Concomitant]
     Indication: MIGRAINE
     Dosage: UNK UKN, UNK
     Route: 048
     Dates: start: 20020101
  4. NEURONTIN [Concomitant]
     Indication: PAIN
     Dosage: 600 MG, UNK
     Route: 048
     Dates: start: 20080101
  5. PROVIGIL [Concomitant]
     Indication: FATIGUE
     Dosage: 200 MG, UNK
     Route: 048
     Dates: start: 20100101

REACTIONS (11)
  - INTERVERTEBRAL DISC PROTRUSION [None]
  - PAIN [None]
  - ASTHENIA [None]
  - FATIGUE [None]
  - MOTOR DYSFUNCTION [None]
  - FEAR [None]
  - DRUG INEFFECTIVE [None]
  - BLADDER DISORDER [None]
  - SPEECH DISORDER [None]
  - INJECTION SITE HAEMORRHAGE [None]
  - INJECTION SITE HAEMATOMA [None]
